FAERS Safety Report 6392556-7 (Version None)
Quarter: 2009Q4

REPORT INFORMATION
  Report Type: 
  Country: None (occurrence: None)
  Receive Date: 20091007
  Receipt Date: 20091001
  Transmission Date: 20100525
  Serious: Yes (Hospitalization)
  Sender: FDA-Public Use
  Company Number: US-GILEAD-2009-0023982

PATIENT
  Sex: Male

DRUGS (7)
  1. LETAIRIS [Suspect]
     Indication: PULMONARY ARTERIAL HYPERTENSION
     Route: 048
  2. LETAIRIS [Suspect]
     Route: 048
     Dates: start: 20080401
  3. VIAGRA [Concomitant]
  4. ASPIRIN [Concomitant]
  5. DIGOXIN [Concomitant]
  6. LEVAQUIN [Concomitant]
  7. INSPRA [Concomitant]

REACTIONS (2)
  - ATRIAL FIBRILLATION [None]
  - SYNCOPE [None]
